FAERS Safety Report 6564450-X (Version None)
Quarter: 2010Q1

REPORT INFORMATION
  Report Type: 
  Country: None (occurrence: None)
  Receive Date: 20100201
  Receipt Date: 20100128
  Transmission Date: 20100710
  Serious: Yes (Death)
  Sender: FDA-Public Use
  Company Number: US-ASTRAZENECA-2010SE03283

PATIENT
  Age: 27 Year
  Sex: Male

DRUGS (2)
  1. SEROQUEL [Suspect]
     Route: 048
  2. A WHOLE BUNCH OF MEDS [Concomitant]

REACTIONS (1)
  - CARDIAC DISORDER [None]
